FAERS Safety Report 11175435 (Version 2)
Quarter: 2015Q3

REPORT INFORMATION
  Report Type: Spontaneous
  Country: CA (occurrence: CA)
  Receive Date: 20150609
  Receipt Date: 20150910
  Transmission Date: 20151125
  Serious: Yes (Hospitalization)
  Sender: FDA-Public Use
  Company Number: CA-JNJFOC-20150604462

PATIENT
  Age: 54 Year
  Sex: Male
  Weight: 104.33 kg

DRUGS (15)
  1. JANUMET [Concomitant]
     Active Substance: METFORMIN HYDROCHLORIDE\SITAGLIPTIN PHOSPHATE
     Dosage: 1 TABLET AT BREAKFAST AND SUPPER (EN150), 50-500 MG
     Route: 065
     Dates: start: 20150902
  2. FUROSEMIDE. [Concomitant]
     Active Substance: FUROSEMIDE
     Dosage: 1 TABLET AT BREAKFAST
     Route: 065
     Dates: start: 20150818
  3. NOVORAPID [Concomitant]
     Active Substance: INSULIN ASPART
     Dosage: 3 ML , 1U/10G OF CARBOHYDRATE AT BREAKFAST, 2U/10G AT LUNCH, 3U/10 G  AT SUPPER
     Route: 065
     Dates: start: 20150818
  4. AVAMYS [Concomitant]
     Active Substance: FLUTICASONE FUROATE
     Dosage: 27.5 UG, 2 SPRAY IN EACH NOSTRIL
     Route: 065
     Dates: start: 20150521
  5. PREGABALIN. [Concomitant]
     Active Substance: PREGABALIN
     Dosage: 1 TO 3 CAPSULES , AT BEDTIME IF NEEDED
     Route: 065
     Dates: start: 20150521
  6. AMLODIPINE [Concomitant]
     Active Substance: AMLODIPINE BESYLATE
     Route: 065
  7. GLUCAGON. [Concomitant]
     Active Substance: GLUCAGON
     Dosage: RDNA ORIGIN, 1 DOSE IF NEEDED
     Route: 065
     Dates: start: 20150818
  8. PRO-AAS EC [Concomitant]
     Dosage: 1 TABLET AT BREAKFAST, DO NOT CHEW
     Route: 065
     Dates: start: 20150818
  9. OMEGA 3 [Concomitant]
     Active Substance: OMEGA-3 FATTY ACIDS
     Route: 065
     Dates: start: 20150211
  10. INSULIN [Concomitant]
     Active Substance: INSULIN NOS
     Route: 065
  11. RHINARIS [Concomitant]
     Dosage: 2 INHALATIONS IN EACH NOSTRIL
     Route: 055
     Dates: start: 20150521
  12. INVOKANA [Suspect]
     Active Substance: CANAGLIFLOZIN
     Indication: PRODUCT USED FOR UNKNOWN INDICATION
     Route: 048
     Dates: start: 20150219, end: 20150404
  13. METOPROLOL [Concomitant]
     Active Substance: METOPROLOL
     Dosage: 1 TABLET IN MORNING
     Route: 065
     Dates: start: 20150818
  14. LANTUS SOLOSTAR [Concomitant]
     Active Substance: INSULIN GLARGINE
     Dosage: 3ML, 100U/ML , 28 UNITS AT BEDTIME
     Route: 058
     Dates: start: 20150715
  15. EZETROL [Concomitant]
     Active Substance: EZETIMIBE
     Dosage: 1 TABLET, QD AT BEDTIME , (ILLEGIBLE) CV100
     Route: 065
     Dates: start: 20150818

REACTIONS (2)
  - Loss of consciousness [Not Recovered/Not Resolved]
  - Blood pressure decreased [Recovered/Resolved]

NARRATIVE: CASE EVENT DATE: 20150309
